FAERS Safety Report 17058098 (Version 1)
Quarter: 2019Q4

REPORT INFORMATION
  Report Type: Spontaneous
  Country: CN (occurrence: CN)
  Receive Date: 20191121
  Receipt Date: 20191121
  Transmission Date: 20200122
  Serious: Yes (Other)
  Sender: FDA-Public Use
  Company Number: CN-PFIZER INC-2019498776

PATIENT
  Age: 36 Year
  Sex: Female
  Weight: 83 kg

DRUGS (2)
  1. HYDROXYCARBAMIDE [Suspect]
     Active Substance: HYDROXYUREA
     Indication: ACUTE MYELOID LEUKAEMIA
     Dosage: 1 G, 3X/DAY
     Route: 048
     Dates: start: 20190929, end: 20191009
  2. CYTOSAR [Suspect]
     Active Substance: CYTARABINE
     Indication: ACUTE MYELOID LEUKAEMIA
     Dosage: 20 MG, 2X/DAY
     Route: 058
     Dates: start: 20191003, end: 20191008

REACTIONS (3)
  - Platelet count decreased [Recovering/Resolving]
  - Petechiae [Unknown]
  - White blood cell count increased [Unknown]

NARRATIVE: CASE EVENT DATE: 20191003
